FAERS Safety Report 21003274 (Version 1)
Quarter: 2022Q2

REPORT INFORMATION
  Report Type: Spontaneous
  Country: US (occurrence: US)
  Receive Date: 20220624
  Receipt Date: 20220624
  Transmission Date: 20220721
  Serious: No
  Sender: FDA-Public Use
  Company Number: US-TEVA-2022-US-2042103

PATIENT
  Age: 44 Year
  Sex: Female
  Weight: 54.43 kg

DRUGS (5)
  1. AJOVY [Suspect]
     Active Substance: FREMANEZUMAB-VFRM
     Indication: Migraine
     Dosage: STRENGTH: 225/1.5 MG/ML
     Dates: start: 20220512
  2. AJOVY [Suspect]
     Active Substance: FREMANEZUMAB-VFRM
  3. LEXAPRO [Concomitant]
     Active Substance: ESCITALOPRAM OXALATE
     Indication: Product used for unknown indication
  4. EXCEDRIN MIGRAINE [Concomitant]
     Active Substance: ACETAMINOPHEN\ASPIRIN\CAFFEINE
     Indication: Product used for unknown indication
  5. MAXALT [Concomitant]
     Active Substance: RIZATRIPTAN BENZOATE
     Indication: Product used for unknown indication

REACTIONS (7)
  - Treatment failure [Unknown]
  - Migraine [Unknown]
  - Insomnia [Unknown]
  - Feeling jittery [Unknown]
  - Agitation [Unknown]
  - Injection site erythema [Unknown]
  - Injection site vesicles [Unknown]

NARRATIVE: CASE EVENT DATE: 20220501
